FAERS Safety Report 11053209 (Version 2)
Quarter: 2015Q2

REPORT INFORMATION
  Report Type: Spontaneous
  Country: US (occurrence: US)
  Receive Date: 20150421
  Receipt Date: 20150525
  Transmission Date: 20150821
  Serious: Yes (Hospitalization, Other)
  Sender: FDA-Public Use
  Company Number: US-JNJFOC-20140305495

PATIENT
  Sex: Male

DRUGS (2)
  1. RISPERDAL [Suspect]
     Active Substance: RISPERIDONE
     Indication: DEPRESSION
     Route: 048
     Dates: start: 1999, end: 2003
  2. RISPERDAL [Suspect]
     Active Substance: RISPERIDONE
     Indication: ATTENTION DEFICIT/HYPERACTIVITY DISORDER
     Route: 048
     Dates: start: 1999, end: 2003

REACTIONS (10)
  - Diabetic ketoacidosis [Unknown]
  - Product use issue [Unknown]
  - Dyskinesia [Unknown]
  - Emotional distress [Unknown]
  - Blood cholesterol increased [Unknown]
  - Hypertension [Unknown]
  - Gynaecomastia [Unknown]
  - Weight increased [Unknown]
  - Tardive dyskinesia [Unknown]
  - Type 1 diabetes mellitus [Recovering/Resolving]
